FAERS Safety Report 10052484 (Version 1)
Quarter: 2014Q2

REPORT INFORMATION
  Report Type: Spontaneous
  Country: IT (occurrence: IT)
  Receive Date: 20140402
  Receipt Date: 20140402
  Transmission Date: 20141212
  Serious: Yes (Hospitalization)
  Sender: FDA-Public Use
  Company Number: IT-SA-2014SA036631

PATIENT
  Age: 88 Year
  Sex: Female
  Weight: 55 kg

DRUGS (6)
  1. SOLOSA [Suspect]
     Indication: DIABETES MELLITUS
     Route: 048
     Dates: start: 20130101, end: 20130217
  2. BISOPROLOL HEMIFUMARATE [Concomitant]
  3. LASIX [Concomitant]
     Route: 048
  4. CARDIOASPIRIN [Concomitant]
     Route: 048
  5. TRIATEC [Concomitant]
     Dosage: DOSE:1 UNIT(S)
     Route: 048
  6. LANSOPRAZOLE [Concomitant]
     Route: 048

REACTIONS (2)
  - Dehydration [Unknown]
  - Hypoglycaemia [Unknown]
